FAERS Safety Report 4740093-5 (Version None)
Quarter: 2005Q3

REPORT INFORMATION
  Report Type: 
  Country: None (occurrence: None)
  Receive Date: 20050810
  Receipt Date: 20040706
  Transmission Date: 20060218
  Serious: No
  Sender: FDA-Public Use
  Company Number: US-GLAXOSMITHKLINE-A0520684A

PATIENT
  Sex: Female

DRUGS (4)
  1. PAXIL [Suspect]
     Route: 065
  2. PAXIL CR [Suspect]
     Indication: ANXIETY
     Dosage: 37.5MG PER DAY
     Route: 048
     Dates: start: 20030228
  3. ACIPHEX [Concomitant]
     Dosage: 20MG PER DAY
  4. RITALIN [Concomitant]
     Dosage: 20MG THREE TIMES PER DAY

REACTIONS (1)
  - DRUG WITHDRAWAL SYNDROME [None]
